FAERS Safety Report 8790224 (Version 1)
Quarter: 2012Q4

REPORT INFORMATION
  Report Type: 
  Country: JP (occurrence: JP)
  Receive Date: 20120917
  Receipt Date: 20120917
  Transmission Date: 20130627
  Serious: Yes (Other)
  Sender: FDA-Public Use
  Company Number: JP-ASTRAZENECA-2005AP06574

PATIENT
  Age: 33 Year
  Sex: Female
  Weight: 57 kg

DRUGS (5)
  1. ANAPEINE [Suspect]
     Indication: EPIDURAL ANAESTHESIA
     Route: 008
     Dates: start: 20051216, end: 20051216
  2. ANAPEINE [Suspect]
     Indication: EPIDURAL ANAESTHESIA
     Route: 008
     Dates: start: 20051216, end: 20051216
  3. ANAPEINE [Suspect]
     Indication: EPIDURAL ANAESTHESIA
     Route: 008
     Dates: start: 20051216, end: 20051216
  4. MARCAIN [Concomitant]
     Indication: SPINAL ANAESTHESIA
     Route: 029
     Dates: start: 20051216, end: 20051216
  5. PROCAINE HYDROCHLORIDE [Concomitant]
     Indication: LOCAL ANAESTHESIA
     Route: 058
     Dates: start: 20051216, end: 20051216

REACTIONS (2)
  - Toxicity to various agents [Recovered/Resolved]
  - Convulsion [Recovered/Resolved]
